FAERS Safety Report 14009257 (Version 2)
Quarter: 2018Q2

REPORT INFORMATION
  Report Type: Spontaneous
  Country: US (occurrence: US)
  Receive Date: 20170925
  Receipt Date: 20180503
  Transmission Date: 20180711
  Serious: Yes (Other)
  Sender: FDA-Public Use
  Company Number: US-PFIZER INC-2017276617

PATIENT
  Age: 47 Year
  Sex: Male

DRUGS (2)
  1. XELJANZ [Suspect]
     Active Substance: TOFACITINIB CITRATE
     Indication: RHEUMATOID ARTHRITIS
     Dosage: 20 MG DAILY (TAB 5 MG / QTY 120 / DAY SUPPLY 30)
  2. XELJANZ [Suspect]
     Active Substance: TOFACITINIB CITRATE
     Dosage: 5MG (2 TABLETS=10MG) TWICE DAILY
     Route: 048

REACTIONS (3)
  - Radius fracture [Unknown]
  - Prescribed overdose [Unknown]
  - Fall [Unknown]

NARRATIVE: CASE EVENT DATE: 20170827
